FAERS Safety Report 9701627 (Version 2)
Quarter: 2013Q4

REPORT INFORMATION
  Report Type: Spontaneous
  Country: US (occurrence: US)
  Receive Date: 20131119
  Receipt Date: 20131119
  Transmission Date: 20140711
  Serious: Yes (Other)
  Sender: FDA-Public Use
  Company Number: US-ORACLE-2011S1000056

PATIENT
  Age: 72 Year
  Sex: Male

DRUGS (8)
  1. KRYSTEXXA INJECTION [Suspect]
     Indication: GOUTY TOPHUS
     Route: 042
     Dates: start: 201107, end: 201107
  2. KRYSTEXXA INJECTION [Suspect]
     Indication: GOUTY TOPHUS
     Route: 042
     Dates: start: 201107, end: 201107
  3. DECADRON /00016005/ [Concomitant]
     Indication: PREMEDICATION
     Route: 042
     Dates: start: 201107, end: 201107
  4. DECADRON /00016005/ [Concomitant]
     Indication: PREMEDICATION
     Route: 042
     Dates: start: 201107, end: 201107
  5. BENADRYL /01563701/ [Concomitant]
     Indication: PREMEDICATION
     Route: 042
     Dates: start: 201107, end: 201107
  6. BENADRYL /01563701/ [Concomitant]
     Indication: PREMEDICATION
     Route: 042
     Dates: start: 201107, end: 201107
  7. TYLENOL /00020001/ [Concomitant]
     Indication: PREMEDICATION
     Route: 048
     Dates: start: 201107, end: 201107
  8. TYLENOL /00020001/ [Concomitant]
     Indication: PREMEDICATION
     Route: 048
     Dates: start: 201107, end: 201107

REACTIONS (1)
  - Anaphylactoid reaction [Recovered/Resolved]
